FAERS Safety Report 17152652 (Version 1)
Quarter: 2019Q4

REPORT INFORMATION
  Report Type: Spontaneous
  Country: ES (occurrence: ES)
  Receive Date: 20191213
  Receipt Date: 20191213
  Transmission Date: 20200122
  Serious: Yes (Hospitalization)
  Sender: FDA-Public Use
  Company Number: ES-MYLANLABS-2019M1122556

PATIENT
  Age: 7 Decade
  Sex: Female

DRUGS (2)
  1. DOVIDA [Suspect]
     Active Substance: SULODEXIDE
     Indication: PERIPHERAL VENOUS DISEASE
     Dosage: 2 DOSAGE FORM, QD
     Route: 048
  2. CLOPIDOGREL [Suspect]
     Active Substance: CLOPIDOGREL BISULFATE
     Indication: PERIPHERAL VENOUS DISEASE
     Dosage: UNK
     Route: 048

REACTIONS (1)
  - Drug ineffective [Recovered/Resolved]

NARRATIVE: CASE EVENT DATE: 201906
